FAERS Safety Report 22223644 (Version 1)
Quarter: 2023Q2

REPORT INFORMATION
  Report Type: Spontaneous
  Country: US (occurrence: None)
  Receive Date: 20230417
  Receipt Date: 20230417
  Transmission Date: 20230722
  Serious: Yes (Hospitalization)
  Sender: FDA-Public Use
  Company Number: None

PATIENT
  Sex: Female

DRUGS (1)
  1. CAPECITABINE [Suspect]
     Active Substance: CAPECITABINE
     Indication: Cholangiocarcinoma
     Dosage: OTHER FREQUENCY : 2 T BID  14D,7D OF;?
     Route: 048
     Dates: start: 20221004

REACTIONS (3)
  - Ulcer [None]
  - Rectal haemorrhage [None]
  - Therapy interrupted [None]
